FAERS Safety Report 5718714-X (Version None)
Quarter: 2008Q2

REPORT INFORMATION
  Report Type: 
  Country: None (occurrence: None)
  Receive Date: 20080423
  Receipt Date: 20080411
  Transmission Date: 20081010
  Serious: Yes (Hospitalization)
  Sender: FDA-Public Use
  Company Number: 009-21880-08020868

PATIENT
  Age: 64 Year
  Sex: Female
  Weight: 89 kg

DRUGS (7)
  1. REVLIMID [Suspect]
     Indication: MULTIPLE MYELOMA
     Dosage: 25 MG, DAILY, ORAL
     Route: 048
     Dates: start: 20080115, end: 20080205
  2. REVLIMID [Suspect]
     Indication: MULTIPLE MYELOMA
     Dosage: 25 MG, DAILY, ORAL
     Route: 048
     Dates: start: 20080214
  3. INSULIN NOVOMIX (INSULIN ASPART) [Concomitant]
  4. PREGABALIN (PREGABALIN) [Concomitant]
  5. DIHYDROCODEINE COMPOUND [Concomitant]
  6. PLAVIX [Concomitant]
  7. ENOXAPARIN SODIUM [Concomitant]

REACTIONS (7)
  - CEREBRAL DISORDER [None]
  - EYELID OEDEMA [None]
  - HAEMOGLOBIN DECREASED [None]
  - LEUKOCYTOCLASTIC VASCULITIS [None]
  - PETECHIAE [None]
  - PLATELET COUNT DECREASED [None]
  - PRURITUS GENERALISED [None]
